FAERS Safety Report 14506264 (Version 1)
Quarter: 2018Q1

REPORT INFORMATION
  Report Type: Spontaneous
  Country: US (occurrence: US)
  Receive Date: 20180208
  Receipt Date: 20180208
  Transmission Date: 20180509
  Serious: Yes (Other)
  Sender: FDA-Public Use
  Company Number: US-TEVA-2018-US-855054

PATIENT
  Sex: Female

DRUGS (1)
  1. ATENOLOL. [Suspect]
     Active Substance: ATENOLOL
     Route: 065
     Dates: start: 1994

REACTIONS (4)
  - Palpitations [Unknown]
  - Chest pain [Unknown]
  - Atrial fibrillation [Unknown]
  - Dyspnoea [Unknown]
